FAERS Safety Report 11162849 (Version 1)
Quarter: 2015Q2

REPORT INFORMATION
  Report Type: Spontaneous
  Country: US (occurrence: US)
  Receive Date: 20150604
  Receipt Date: 20150604
  Transmission Date: 20150821
  Serious: No
  Sender: FDA-Public Use
  Company Number: US-SA-2014SA167774

PATIENT
  Sex: Male

DRUGS (2)
  1. LANTUS [Suspect]
     Active Substance: INSULIN GLARGINE
     Indication: DIABETES MELLITUS
     Route: 065
     Dates: end: 20141031
  2. NOVOLOG [Suspect]
     Active Substance: INSULIN ASPART
     Dosage: VIAL
     Route: 065
     Dates: end: 20141031

REACTIONS (3)
  - Urticaria [Unknown]
  - Rash [Unknown]
  - Blood glucose increased [Unknown]
